FAERS Safety Report 11855041 (Version 3)
Quarter: 2016Q2

REPORT INFORMATION
  Report Type: Spontaneous
  Country: FR (occurrence: FR)
  Receive Date: 20151221
  Receipt Date: 20160422
  Transmission Date: 20160815
  Serious: Yes (Death, Hospitalization, Other)
  Sender: FDA-Public Use
  Company Number: FR-ELI_LILLY_AND_COMPANY-FR201512004545

PATIENT
  Age: 63 Year
  Sex: Male

DRUGS (6)
  1. CREON [Concomitant]
     Active Substance: PANCRELIPASE AMYLASE\PANCRELIPASE LIPASE\PANCRELIPASE PROTEASE
     Indication: PRODUCT USED FOR UNKNOWN INDICATION
     Route: 065
  2. COVERSYL                           /00790702/ [Concomitant]
     Active Substance: PERINDOPRIL
     Indication: PRODUCT USED FOR UNKNOWN INDICATION
     Dosage: UNK, UNKNOWN
     Route: 065
  3. ASPEGIC [Concomitant]
     Active Substance: ASPIRIN DL-LYSINE
     Indication: PRODUCT USED FOR UNKNOWN INDICATION
     Dosage: UNK, UNKNOWN
     Route: 065
  4. GEMZAR [Suspect]
     Active Substance: GEMCITABINE HYDROCHLORIDE
     Indication: PANCREATIC CARCINOMA
     Dosage: 1000 MG/M2, CYCLICAL
     Route: 042
     Dates: start: 20141209, end: 20150310
  5. ATENOLOL. [Concomitant]
     Active Substance: ATENOLOL
     Indication: PRODUCT USED FOR UNKNOWN INDICATION
     Dosage: UNK, UNKNOWN
     Route: 065
  6. KARDEGIC [Concomitant]
     Active Substance: ASPIRIN LYSINE
     Indication: PRODUCT USED FOR UNKNOWN INDICATION
     Dosage: UNK, UNKNOWN
     Route: 065

REACTIONS (23)
  - Hypoxic-ischaemic encephalopathy [Fatal]
  - Bronchial disorder [Unknown]
  - Lung infection [Fatal]
  - Respiratory distress [Fatal]
  - Diffuse alveolar damage [Fatal]
  - Pulmonary vascular disorder [Fatal]
  - Pulmonary haemorrhage [Unknown]
  - Pulmonary embolism [Fatal]
  - Bronchitis [Unknown]
  - Pulmonary toxicity [Unknown]
  - Asthenia [Unknown]
  - Renal failure [Fatal]
  - Angiopathy [Fatal]
  - Cardiac failure [Fatal]
  - Pulmonary arterial hypertension [Fatal]
  - Oedema [Unknown]
  - Gastrointestinal disorder [Unknown]
  - Emphysema [Fatal]
  - Anaemia [Unknown]
  - Oedema peripheral [Unknown]
  - Atrial fibrillation [Fatal]
  - General physical health deterioration [Fatal]
  - Muscular weakness [Unknown]

NARRATIVE: CASE EVENT DATE: 20150321
